FAERS Safety Report 9582313 (Version 1)
Quarter: 2013Q4

REPORT INFORMATION
  Report Type: Spontaneous
  Country: US (occurrence: US)
  Receive Date: 20131002
  Receipt Date: 20131002
  Transmission Date: 20140711
  Serious: No
  Sender: FDA-Public Use
  Company Number: US-AMGEN-USASP2013039553

PATIENT
  Age: 65 Year
  Sex: Female

DRUGS (19)
  1. ENBREL [Suspect]
     Indication: PRODUCT USED FOR UNKNOWN INDICATION
     Dosage: 50 MG, QWK
     Route: 058
  2. PREDNISONE [Concomitant]
     Dosage: 1 MG, UNK
  3. SERTRALINE [Concomitant]
     Dosage: 25 MG, UNK
  4. CLOMIPRAMINE [Concomitant]
     Dosage: 25 MG, UNK
  5. LIALDA [Concomitant]
     Dosage: 1.2 G, UNK
  6. LUNESTA [Concomitant]
     Dosage: 1 MG, UNK
  7. PROVIGIL                           /01265601/ [Concomitant]
     Dosage: 100 MG, UNK
  8. RESTASIS [Concomitant]
     Dosage: 0.05 %, UNK
  9. LEVOTHYROXIN [Concomitant]
     Dosage: 75 MUG, UNK
  10. ZETIA [Concomitant]
     Dosage: 10 MG, UNK
  11. ESTRADIOL [Concomitant]
     Dosage: 0.1 MG, UNK
  12. DEXILANT [Concomitant]
     Dosage: 60 MG, UNK
  13. VERAMYST [Concomitant]
     Dosage: 27.5 MUG, UNK
  14. SINGULAIR [Concomitant]
     Dosage: 10 MG, UNK
  15. SYMBICORT [Concomitant]
     Dosage: 160-4.5, UNK
  16. PROAIR HFA [Concomitant]
     Dosage: UNK
  17. LISINOPRIL [Concomitant]
     Dosage: 10 MG, UNK
  18. PROLIA [Concomitant]
     Dosage: 60 MG/ML, UNK
  19. LORAZEPAM [Concomitant]
     Dosage: 1 MG, UNK

REACTIONS (2)
  - Cough [Unknown]
  - Asthma [Unknown]
